FAERS Safety Report 9205351 (Version 2)
Quarter: 2013Q2

REPORT INFORMATION
  Report Type: Report from Study
  Country: BR (occurrence: BR)
  Receive Date: 20130402
  Receipt Date: 20130620
  Transmission Date: 20140414
  Serious: Yes (Life-Threatening, Hospitalization)
  Sender: FDA-Public Use
  Company Number: BR-BAYER-2013-036641

PATIENT
  Age: 25 Year
  Sex: Female

DRUGS (2)
  1. NEXAVAR [Suspect]
     Indication: HEPATIC CANCER
     Dosage: 2 DF, QD
     Route: 048
     Dates: start: 2012
  2. ANTINEOPLASTIC AGENTS [Concomitant]
     Dosage: UNK
     Dates: start: 20130321

REACTIONS (7)
  - Malaise [Unknown]
  - Swelling [None]
  - Dehydration [None]
  - Oral mucosal blistering [None]
  - Pruritus generalised [None]
  - Blister [None]
  - Rash macular [None]
